FAERS Safety Report 8006569-2 (Version None)
Quarter: 2011Q4

REPORT INFORMATION
  Report Type: 
  Country: None (occurrence: None)
  Receive Date: 20111227
  Receipt Date: 20111217
  Transmission Date: 20120403
  Serious: Yes (Hospitalization)
  Sender: FDA-Public Use
  Company Number: US-PAR PHARMACEUTICAL, INC-2011SCPR003558

PATIENT

DRUGS (2)
  1. VERAPAMIL [Suspect]
     Dosage: UNK, UNKNOWN
     Route: 048
  2. VERAPAMIL [Suspect]
     Indication: PRODUCT USED FOR UNKNOWN INDICATION
     Dosage: UNK, UNKNOWN

REACTIONS (2)
  - CONDITION AGGRAVATED [None]
  - TORSADE DE POINTES [None]
